FAERS Safety Report 7731916-6 (Version None)
Quarter: 2011Q3

REPORT INFORMATION
  Report Type: 
  Country: None (occurrence: None)
  Receive Date: 20110906
  Receipt Date: 20110714
  Transmission Date: 20111222
  Serious: No
  Sender: FDA-Public Use
  Company Number: US-AMGEN-USASP2011029735

PATIENT
  Age: 50 Year
  Sex: Female
  Weight: 49.887 kg

DRUGS (1)
  1. PROLIA [Suspect]
     Indication: OSTEOPOROSIS POSTMENOPAUSAL
     Dosage: 60 MG, Q6MO
     Dates: start: 20110501

REACTIONS (8)
  - INJECTION SITE SWELLING [None]
  - NEPHROLITHIASIS [None]
  - MOBILITY DECREASED [None]
  - PAIN IN EXTREMITY [None]
  - NAUSEA [None]
  - HYPOAESTHESIA [None]
  - POOR PERIPHERAL CIRCULATION [None]
  - MUSCULOSKELETAL STIFFNESS [None]
